FAERS Safety Report 16684390 (Version 2)
Quarter: 2019Q4

REPORT INFORMATION
  Report Type: Spontaneous
  Country: FR (occurrence: FR)
  Receive Date: 20190808
  Receipt Date: 20191218
  Transmission Date: 20200122
  Serious: Yes (Congenital Anomaly, Other)
  Sender: FDA-Public Use
  Company Number: PHHY2019FR179458

PATIENT

DRUGS (3)
  1. DEPAKINE CHRONO [Suspect]
     Active Substance: VALPROATE SODIUM
     Indication: FOETAL EXPOSURE DURING PREGNANCY
     Dosage: 1000 MG, QD
     Route: 064
     Dates: start: 20080103, end: 20080527
  2. SPECIAFOLDINE [Concomitant]
     Active Substance: FOLIC ACID
     Indication: FOETAL EXPOSURE DURING PREGNANCY
     Dosage: 5 MG, QD
     Route: 064
     Dates: start: 20080103, end: 20080527
  3. LAMOTRIGINE. [Suspect]
     Active Substance: LAMOTRIGINE
     Indication: FOETAL EXPOSURE DURING PREGNANCY
     Dosage: UNK
     Route: 064
     Dates: start: 20080103, end: 20080527

REACTIONS (6)
  - Talipes [Unknown]
  - Cerebral ventricle dilatation [Unknown]
  - Arnold-Chiari malformation [Unknown]
  - Meningomyelocele [Unknown]
  - Foetal exposure during pregnancy [Unknown]
  - Spina bifida [Unknown]
